FAERS Safety Report 8800752 (Version 2)
Quarter: 2015Q2

REPORT INFORMATION
  Report Type: Report from Study
  Country: US (occurrence: US)
  Receive Date: 20120921
  Receipt Date: 20150624
  Transmission Date: 20150821
  Serious: Yes (Death)
  Sender: FDA-Public Use
  Company Number: US-ROCHE-1127498

PATIENT
  Sex: Female

DRUGS (6)
  1. CIPRO [Concomitant]
     Active Substance: CIPROFLOXACIN HYDROCHLORIDE
     Indication: RESPIRATORY TRACT INFECTION
     Route: 065
     Dates: start: 20060101
  2. TARCEVA [Suspect]
     Active Substance: ERLOTINIB HYDROCHLORIDE
     Indication: RENAL CANCER
     Route: 048
  3. AVASTIN [Suspect]
     Active Substance: BEVACIZUMAB
     Indication: HAEMATOLOGICAL MALIGNANCY
  4. TARCEVA [Suspect]
     Active Substance: ERLOTINIB HYDROCHLORIDE
     Indication: MALIGNANT URINARY TRACT NEOPLASM
     Route: 048
  5. AVASTIN [Suspect]
     Active Substance: BEVACIZUMAB
     Indication: BONE CANCER
  6. AVASTIN [Suspect]
     Active Substance: BEVACIZUMAB
     Indication: RENAL CANCER
     Route: 042
     Dates: start: 20051206, end: 20060104

REACTIONS (6)
  - Off label use [Unknown]
  - Disease progression [Fatal]
  - Fatigue [Unknown]
  - Respiratory tract infection [Unknown]
  - Dyspnoea exertional [Unknown]
  - Pyrexia [Unknown]
